FAERS Safety Report 4475391-6 (Version None)
Quarter: 2004Q4

REPORT INFORMATION
  Report Type: 
  Country: None (occurrence: None)
  Receive Date: 20041015
  Receipt Date: 20041006
  Transmission Date: 20050328
  Serious: Yes (Other)
  Sender: FDA-Public Use
  Company Number: GB-ABBOTT-04P-167-0276294-00

PATIENT
  Age: 51 Year
  Sex: Male

DRUGS (5)
  1. VALPROIC ACID [Suspect]
     Indication: MOOD SWINGS
     Route: 048
     Dates: start: 19990101
  2. CLOZAPINE [Suspect]
     Indication: SCHIZOPHRENIA
     Route: 048
     Dates: start: 20040101
  3. LAMOTRIGINE [Concomitant]
     Indication: MOOD ALTERED
     Route: 048
     Dates: start: 20031001
  4. HYOSCINE HBR HYT [Concomitant]
     Indication: DRUG USE FOR UNKNOWN INDICATION
     Route: 048
  5. CODEINE [Concomitant]
     Indication: PAIN
     Route: 048
     Dates: start: 20040614

REACTIONS (6)
  - ASTHENIA [None]
  - CIRCULATORY COLLAPSE [None]
  - DYSARTHRIA [None]
  - LOSS OF CONSCIOUSNESS [None]
  - SEDATION [None]
  - UNEVALUABLE EVENT [None]
